FAERS Safety Report 20478289 (Version 1)
Quarter: 2022Q1

REPORT INFORMATION
  Report Type: Spontaneous
  Country: US (occurrence: US)
  Receive Date: 20220216
  Receipt Date: 20220216
  Transmission Date: 20220424
  Serious: No
  Sender: FDA-Public Use
  Company Number: US-BRISTOL-MYERS SQUIBB COMPANY-BMS-2022-018471

PATIENT
  Age: 48 Year
  Sex: Male
  Weight: 90.703 kg

DRUGS (2)
  1. KENALOG-40 [Suspect]
     Active Substance: TRIAMCINOLONE ACETONIDE
     Indication: Periarthritis
     Dosage: SYRINGE WAS PRETTY FULL TO THE TOP, ONE TIME
     Route: 065
     Dates: start: 202109
  2. LIDOCAINE [Concomitant]
     Active Substance: LIDOCAINE
     Indication: Product used for unknown indication
     Dosage: UNK
     Route: 065

REACTIONS (15)
  - Memory impairment [Unknown]
  - Feeling abnormal [Unknown]
  - Mood swings [Unknown]
  - Confusional state [Unknown]
  - Anxiety [Unknown]
  - Paraesthesia oral [Unknown]
  - Hypoaesthesia oral [Unknown]
  - Aphasia [Unknown]
  - Hyperhidrosis [Unknown]
  - Overdose [Unknown]
  - Vision blurred [Unknown]
  - Cough [Unknown]
  - Impaired healing [Unknown]
  - Pruritus [Unknown]
  - Head discomfort [Unknown]
